FAERS Safety Report 6581641-2 (Version None)
Quarter: 2010Q1

REPORT INFORMATION
  Report Type: 
  Country: None (occurrence: None)
  Receive Date: 20100211
  Receipt Date: 20100211
  Transmission Date: 20100710
  Serious: No
  Sender: FDA-Public Use
  Company Number: None

PATIENT
  Sex: Female
  Weight: 75.2971 kg

DRUGS (2)
  1. SUMATRIPTAN SUCCINATE [Suspect]
     Indication: MIGRAINE
     Dosage: 6 MG PRN IM TRIED 3 TIMES
     Route: 030
     Dates: start: 20090901
  2. SUMATRIPTAN SUCCINATE [Suspect]

REACTIONS (1)
  - DRUG INEFFECTIVE [None]
